FAERS Safety Report 7293259-7 (Version None)
Quarter: 2011Q1

REPORT INFORMATION
  Report Type: 
  Country: None (occurrence: None)
  Receive Date: 20110215
  Receipt Date: 20110214
  Transmission Date: 20110831
  Serious: Yes (Other)
  Sender: FDA-Public Use
  Company Number: PE-PFIZER INC-2011032635

PATIENT

DRUGS (1)
  1. SUTENT [Suspect]
     Indication: LUNG CANCER METASTATIC
     Dosage: UNK
     Route: 048

REACTIONS (1)
  - PLEURAL EFFUSION [None]
